FAERS Safety Report 4817311-8 (Version None)
Quarter: 2005Q4

REPORT INFORMATION
  Report Type: 
  Country: None (occurrence: None)
  Receive Date: 20051018
  Receipt Date: 20041210
  Transmission Date: 20060501
  Serious: Yes (Other)
  Sender: FDA-Public Use
  Company Number: PHEH2004US12081

PATIENT
  Age: 64 Year
  Sex: Female

DRUGS (6)
  1. ZOMETA [Suspect]
     Indication: OVARIAN CANCER
     Dosage: 4 MG, QMO, INJECTION NOS
     Dates: start: 20040202
  2. TAXOL [Concomitant]
  3. PARAPLATIN [Concomitant]
  4. TAMOXIFEN [Concomitant]
  5. MELPHALAN [Concomitant]
  6. PREDNISOLONE TABLETS USP (NGX) (PREDNISONE) TABLET [Concomitant]

REACTIONS (7)
  - BONE DISORDER [None]
  - BONE FORMATION INCREASED [None]
  - GINGIVAL PAIN [None]
  - TOOTH ABSCESS [None]
  - TOOTH EXTRACTION [None]
  - TOOTH FRACTURE [None]
  - TOOTHACHE [None]
